FAERS Safety Report 12846128 (Version 1)
Quarter: 2016Q4

REPORT INFORMATION
  Report Type: Report from Study
  Country: DE (occurrence: DE)
  Receive Date: 20161014
  Receipt Date: 20161014
  Transmission Date: 20170207
  Serious: Yes (Hospitalization)
  Sender: FDA-Public Use
  Company Number: DE-ROCHE-1841343

PATIENT
  Age: 14 Year
  Sex: Female

DRUGS (7)
  1. L-THYROXIN [Concomitant]
     Active Substance: LEVOTHYROXINE SODIUM
     Indication: ENDOCRINE DISORDER
     Route: 048
     Dates: start: 20140307, end: 20150429
  2. ESTRADIOLVALERAT [Concomitant]
     Route: 048
     Dates: start: 20151020
  3. SOMATROPIN [Suspect]
     Active Substance: SOMATROPIN
     Indication: FAILURE TO THRIVE
     Route: 058
     Dates: start: 20140715
  4. L-THYROXIN [Concomitant]
     Active Substance: LEVOTHYROXINE SODIUM
     Indication: HYPOTHYROIDISM
  5. SOMATROPIN [Suspect]
     Active Substance: SOMATROPIN
     Indication: GROWTH HORMONE DEFICIENCY
  6. COLECALCIFEROL [Concomitant]
     Active Substance: CHOLECALCIFEROL
     Route: 048
     Dates: start: 20140307
  7. ESTRADIOLVALERAT [Concomitant]
     Indication: PRIMARY HYPOGONADISM
     Route: 048
     Dates: start: 20150615, end: 20151019

REACTIONS (2)
  - Knee deformity [Recovered/Resolved]
  - Knee operation [Recovered/Resolved]

NARRATIVE: CASE EVENT DATE: 20151103
